FAERS Safety Report 25904248 (Version 1)
Quarter: 2025Q4

REPORT INFORMATION
  Report Type: Report from Study
  Country: CA (occurrence: CA)
  Receive Date: 20251010
  Receipt Date: 20251010
  Transmission Date: 20260118
  Serious: Yes (Other)
  Sender: Alvotech
  Company Number: CA-JAMP PHARMA CORPORATION-2023-JAM-CA-01226

PATIENT
  Age: 28 Year
  Sex: Male

DRUGS (2)
  1. SIMLANDI [Suspect]
     Active Substance: ADALIMUMAB-RYVK
     Indication: Crohn^s disease
     Dosage: 80MG, EVERY WEEK - USING 2X 40MG AI
     Route: 058
     Dates: start: 20230602
  2. SIMLANDI [Suspect]
     Active Substance: ADALIMUMAB-RYVK
     Indication: Crohn^s disease
     Dosage: 40MG, EVERY WEEK
     Route: 058
     Dates: start: 20230602

REACTIONS (4)
  - Crohn^s disease [Unknown]
  - Product dose omission issue [Unknown]
  - Product dispensing issue [Unknown]
  - Off label use [Unknown]

NARRATIVE: CASE EVENT DATE: 20230723
